FAERS Safety Report 21049536 (Version 1)
Quarter: 2022Q3

REPORT INFORMATION
  Report Type: Spontaneous
  Country: US (occurrence: None)
  Receive Date: 20220706
  Receipt Date: 20220706
  Transmission Date: 20221026
  Serious: Yes (Other)
  Sender: FDA-Public Use
  Company Number: None

PATIENT
  Sex: Female

DRUGS (2)
  1. LATANOPROST [Suspect]
     Active Substance: LATANOPROST
     Indication: Product used for unknown indication
  2. LUMIGAN [Suspect]
     Active Substance: BIMATOPROST

REACTIONS (3)
  - Ocular hyperaemia [None]
  - Eye irritation [None]
  - Intraocular pressure increased [None]
